FAERS Safety Report 11773047 (Version 1)
Quarter: 2015Q4

REPORT INFORMATION
  Report Type: Spontaneous
  Country: IT (occurrence: IT)
  Receive Date: 20151124
  Receipt Date: 20151124
  Transmission Date: 20160304
  Serious: Yes (Death, Hospitalization)
  Sender: FDA-Public Use
  Company Number: IT-ROXANE LABORATORIES, INC.-2015-RO-01995RO

PATIENT
  Age: 59 Year
  Sex: Male

DRUGS (3)
  1. LORAZEPAM. [Suspect]
     Active Substance: LORAZEPAM
     Indication: MENTAL RETARDATION
     Route: 065
  2. OLANZAPINE. [Suspect]
     Active Substance: OLANZAPINE
     Indication: MENTAL RETARDATION
     Route: 065
  3. BIPERIDENE CHORHYDRATE [Suspect]
     Active Substance: BIPERIDEN HYDROCHLORIDE
     Indication: MENTAL RETARDATION
     Route: 065

REACTIONS (5)
  - Faecaloma [Unknown]
  - Large intestine perforation [Unknown]
  - Death [Fatal]
  - Peritonitis [Unknown]
  - Megacolon [Unknown]
